FAERS Safety Report 13188443 (Version 1)
Quarter: 2017Q1

REPORT INFORMATION
  Report Type: Spontaneous
  Country: US (occurrence: US)
  Receive Date: 20170203
  Receipt Date: 20170203
  Transmission Date: 20170428
  Serious: Yes (Hospitalization, Other)
  Sender: FDA-Public Use
  Company Number: None

PATIENT
  Age: 1 Year
  Sex: Male
  Weight: 6.3 kg

DRUGS (1)
  1. CVS HOMEOPATHIC INFANTS^ TEETHING TABLET, 135 COUNT [Suspect]
     Active Substance: HOMEOPATHICS
     Indication: TEETHING
     Dosage: ?          QUANTITY:135 TABLET(S);?
     Route: 048
     Dates: start: 20150901

REACTIONS (3)
  - Unevaluable event [None]
  - Lethargy [None]
  - Somnolence [None]

NARRATIVE: CASE EVENT DATE: 20160122
